FAERS Safety Report 15175942 (Version 1)
Quarter: 2018Q3

REPORT INFORMATION
  Report Type: Report from Study
  Country: US (occurrence: US)
  Receive Date: 20180720
  Receipt Date: 20180720
  Transmission Date: 20181010
  Serious: No
  Sender: FDA-Public Use
  Company Number: US-AMGEN-USASL2018088832

PATIENT
  Age: 62 Year
  Sex: Female

DRUGS (1)
  1. REPATHA [Suspect]
     Active Substance: EVOLOCUMAB
     Indication: HYPERLIPIDAEMIA
     Dosage: 420/3.5 ML, QMO
     Route: 065

REACTIONS (4)
  - Back pain [Unknown]
  - Cheilitis [Unknown]
  - Rash [Unknown]
  - Stomatitis [Unknown]
